FAERS Safety Report 9344104 (Version 1)
Quarter: 2013Q2

REPORT INFORMATION
  Report Type: Report from Study
  Country: NZ (occurrence: NZ)
  Receive Date: 20130612
  Receipt Date: 20130612
  Transmission Date: 20140414
  Serious: Yes (Hospitalization)
  Sender: FDA-Public Use
  Company Number: PHHY2013NZ049462

PATIENT
  Age: 27 Year
  Sex: Male

DRUGS (4)
  1. CLOZAPINE [Suspect]
     Dosage: UNK
     Dates: start: 20011214
  2. CLOZARIL [Suspect]
     Dosage: UNK
  3. CLOPINE [Suspect]
     Dosage: UNK
     Dates: start: 20071119
  4. EPILIM [Suspect]
     Dosage: UNK

REACTIONS (3)
  - Idiopathic neutropenia [Unknown]
  - Neutrophil count decreased [Recovered/Resolved]
  - White blood cell count decreased [Recovered/Resolved]
